FAERS Safety Report 7095823 (Version 3)
Quarter: 2014Q2

REPORT INFORMATION
  Report Type: Spontaneous
  Country: US (occurrence: None)
  Receive Date: 20090817
  Receipt Date: 20140616
  Transmission Date: 20141212
  Serious: Yes (Hospitalization, Other)
  Sender: FDA-Public Use
  Company Number: 2009S1006586

PATIENT
  Age: 59 Year
  Sex: Female

DRUGS (19)
  1. FLEET PHOSPHO-SODA [Suspect]
     Indication: COLONOSCOPY
     Dosage: ; PO
     Route: 048
     Dates: start: 20081119, end: 20081119
  2. FLEET ENEMA [Suspect]
     Indication: COLONOSCOPY
     Route: 054
     Dates: start: 20081120, end: 20081120
  3. DULCOLAX [Suspect]
     Indication: COLONOSCOPY
     Route: 048
  4. ENALAPRIL (ENALAPRIL) [Concomitant]
  5. SIMVASTATIN (SIMVASTATIN) [Concomitant]
  6. METOPROLOL (METOPROLOL) [Concomitant]
  7. METFORMIN (METFORMIN) [Concomitant]
  8. TRAMADOL (TRAMADOL) [Concomitant]
  9. HYDROCHLOROTHIAZIDE (HYDROCHLOROTHIAZIDE) [Concomitant]
  10. HUMALOG (INSULIN LISPRO) [Concomitant]
  11. EFFEXOR XR (VENLAFAXINE HYDROCHLORIDE) [Concomitant]
  12. JANUVIA (SITAGLIPTIN PHOSPHATE) [Concomitant]
  13. LORATADINE (LORATADINE) [Concomitant]
  14. NAPROXEN (NAPROXEN) [Concomitant]
  15. OMEPRAZOLE (OMEPRAZOLE) [Concomitant]
  16. TRAMADOL (TRAMADOL) [Concomitant]
  17. MECLIZINE (MECLOZINE) [Concomitant]
  18. GLIMEPIRIDE (GLIMEPIRIDE) [Concomitant]
  19. LEXAPRO (ESCITALOPRAM OXALATE) [Concomitant]

REACTIONS (9)
  - Renal failure chronic [None]
  - Diarrhoea [None]
  - Rectal haemorrhage [None]
  - Abdominal pain [None]
  - Constipation [None]
  - Gastritis [None]
  - Hypotension [None]
  - Hyperglycaemia [None]
  - Helicobacter sepsis [None]
